FAERS Safety Report 18422083 (Version 2)
Quarter: 2020Q4

REPORT INFORMATION
  Report Type: Spontaneous
  Country: CA (occurrence: CA)
  Receive Date: 20201023
  Receipt Date: 20201030
  Transmission Date: 20210114
  Serious: Yes (Other)
  Sender: FDA-Public Use
  Company Number: CA-JNJFOC-20201026015

PATIENT
  Age: 43 Year
  Sex: Female
  Weight: 203 kg

DRUGS (2)
  1. REMICADE [Suspect]
     Active Substance: INFLIXIMAB
     Indication: CROHN^S DISEASE
     Dosage: 100 MG VIAL STRENGTH
     Route: 042
  2. GABAPENTIN. [Suspect]
     Active Substance: GABAPENTIN
     Indication: PRODUCT USED FOR UNKNOWN INDICATION
     Route: 065

REACTIONS (8)
  - Infected fistula [Unknown]
  - Abnormal weight gain [Unknown]
  - Abnormal loss of weight [Unknown]
  - Nasopharyngitis [Unknown]
  - Herpes zoster [Unknown]
  - Stress [Unknown]
  - Therapeutic product effect decreased [Unknown]
  - Crohn^s disease [Unknown]
